FAERS Safety Report 9438146 (Version 1)
Quarter: 2013Q3

REPORT INFORMATION
  Report Type: Spontaneous
  Country: US (occurrence: US)
  Receive Date: 20130802
  Receipt Date: 20130802
  Transmission Date: 20140515
  Serious: No
  Sender: FDA-Public Use
  Company Number: US-BRISTOL-MYERS SQUIBB COMPANY-16846958

PATIENT
  Age: 62 Year
  Sex: Male

DRUGS (3)
  1. COUMADIN [Suspect]
  2. LETAIRIS [Suspect]
     Dosage: TABS
     Route: 048
     Dates: start: 20100901
  3. TREPROSTINIL [Suspect]
     Route: 058

REACTIONS (4)
  - Catheter site haemorrhage [Unknown]
  - Pain in jaw [Unknown]
  - Pain in extremity [Unknown]
  - Arthralgia [Unknown]
